FAERS Safety Report 17031908 (Version 1)
Quarter: 2019Q4

REPORT INFORMATION
  Report Type: Spontaneous
  Country: US (occurrence: US)
  Receive Date: 20191014
  Receipt Date: 20191014
  Transmission Date: 20200122
  Serious: No
  Sender: FDA-Public Use
  Company Number: None

PATIENT
  Age: 39 Year
  Sex: Female

DRUGS (10)
  1. HUMIRA [Suspect]
     Active Substance: ADALIMUMAB
     Indication: PSORIATIC ARTHROPATHY
     Dosage: ?          OTHER FREQUENCY:EVERY 2 WEEKS;?
     Route: 058
     Dates: start: 20180724
  2. ATORVASTATIN [Concomitant]
     Active Substance: ATORVASTATIN
  3. METHOTREXATE. [Concomitant]
     Active Substance: METHOTREXATE
  4. METOPROLOL. [Concomitant]
     Active Substance: METOPROLOL
  5. BUDESONIDE. [Concomitant]
     Active Substance: BUDESONIDE
  6. LISNOPRIL [Concomitant]
  7. LEVEMIR [Concomitant]
     Active Substance: INSULIN DETEMIR
  8. GABAPENTIN. [Concomitant]
     Active Substance: GABAPENTIN
  9. TIZANIDINE. [Concomitant]
     Active Substance: TIZANIDINE
  10. FOLIC ACID. [Concomitant]
     Active Substance: FOLIC ACID

REACTIONS (2)
  - Product dose omission [None]
  - Pneumonia [None]

NARRATIVE: CASE EVENT DATE: 20190904
